FAERS Safety Report 12726391 (Version 2)
Quarter: 2021Q3

REPORT INFORMATION
  Report Type: Spontaneous
  Country: US (occurrence: US)
  Receive Date: 20160908
  Receipt Date: 20210814
  Transmission Date: 20211014
  Serious: Yes (Other)
  Sender: FDA-Public Use
  Company Number: US-TEVA-689820USA

PATIENT
  Age: 62 Year
  Sex: Female

DRUGS (7)
  1. BUPIVACAINE. [Suspect]
     Active Substance: BUPIVACAINE
     Indication: POST LAMINECTOMY SYNDROME
     Dosage: 9 MILLIGRAM DAILY;
     Route: 037
  2. OLANZAPINE. [Suspect]
     Active Substance: OLANZAPINE
     Route: 065
  3. ZICONOTIDE [Concomitant]
     Active Substance: ZICONOTIDE
     Indication: POST LAMINECTOMY SYNDROME
     Dosage: 3 MICROGRAM DAILY;
     Route: 037
  4. LISINOPRIL. [Suspect]
     Active Substance: LISINOPRIL
     Route: 065
  5. FLUOXETINE [Suspect]
     Active Substance: FLUOXETINE HYDROCHLORIDE
     Route: 065
  6. METHADONE [Suspect]
     Active Substance: METHADONE HYDROCHLORIDE
     Route: 065
  7. HYDROMORPHONE [Suspect]
     Active Substance: HYDROMORPHONE
     Indication: POST LAMINECTOMY SYNDROME
     Dosage: 150 MILLIGRAM DAILY;
     Route: 037

REACTIONS (1)
  - Oedema peripheral [Recovered/Resolved]
